FAERS Safety Report 4866995-7 (Version None)
Quarter: 2005Q4

REPORT INFORMATION
  Report Type: 
  Country: None (occurrence: None)
  Receive Date: 20051227
  Receipt Date: 20041230
  Transmission Date: 20060501
  Serious: Yes (Hospitalization)
  Sender: FDA-Public Use
  Company Number: US-MERCK-0501USA00014

PATIENT
  Sex: Female

DRUGS (11)
  1. HUMIBID [Concomitant]
     Route: 065
  2. ZYRTEC [Concomitant]
     Route: 065
  3. VIOXX [Suspect]
     Route: 048
     Dates: start: 19991019, end: 20041018
  4. DIOVAN [Concomitant]
     Route: 065
  5. DOXEPIN HYDROCHLORIDE [Concomitant]
     Route: 065
  6. PRAMEGEL [Concomitant]
     Route: 065
  7. REGLAN [Concomitant]
     Route: 065
  8. ULTRAVATE [Concomitant]
     Route: 065
  9. ADVAIR DISKUS 250/50 [Concomitant]
     Route: 065
  10. PRILOSEC [Concomitant]
     Route: 065
  11. ESTROPIPATE [Concomitant]
     Route: 065

REACTIONS (8)
  - ACUTE SINUSITIS [None]
  - CEREBROVASCULAR ACCIDENT [None]
  - CHRONIC OBSTRUCTIVE PULMONARY DISEASE [None]
  - DYSPHAGIA [None]
  - EAR INFECTION [None]
  - LACUNAR INFARCTION [None]
  - PLEURITIC PAIN [None]
  - WEIGHT INCREASED [None]
